FAERS Safety Report 4977021-3 (Version None)
Quarter: 2006Q2

REPORT INFORMATION
  Report Type: 
  Country: None (occurrence: None)
  Receive Date: 20060412
  Receipt Date: 20060330
  Transmission Date: 20061013
  Serious: Yes (Hospitalization, Other)
  Sender: FDA-Public Use
  Company Number: HQWYE748124JUN03

PATIENT
  Age: 70 Year
  Sex: Male
  Weight: 81.72 kg

DRUGS (16)
  1. MYLOTARG [Suspect]
     Indication: ACUTE MYELOID LEUKAEMIA RECURRENT
     Dosage: 18 MG 1X PER 1 DAY, INTRAVENOUS
     Route: 042
     Dates: start: 20030619, end: 20030619
  2. MYLOTARG [Suspect]
     Indication: ACUTE MYELOID LEUKAEMIA RECURRENT
     Dosage: 18 MG 1X PER 1 DAY, INTRAVENOUS
     Route: 042
     Dates: start: 20030703, end: 20030703
  3. NEXIUM [Concomitant]
  4. OXYCODONE (OXYCODONE) [Concomitant]
  5. NEURONTIN [Concomitant]
  6. MORPHINE SULFATE [Concomitant]
  7. AMBIEN [Concomitant]
  8. TYLENOL [Concomitant]
  9. ZOSYN [Concomitant]
  10. GENTAMICIN [Concomitant]
  11. BRICANYL [Concomitant]
  12. THEOPHYLLIINE (THEOPHYLLLINE) [Concomitant]
  13. ALLOPURINOL [Concomitant]
  14. MUCOMYST [Concomitant]
  15. MEDROL ACETATE [Concomitant]
  16. CELECOXIB (CELECOXIB) [Concomitant]

REACTIONS (11)
  - ASPARTATE AMINOTRANSFERASE INCREASED [None]
  - BLOOD ALKALINE PHOSPHATASE INCREASED [None]
  - BLOOD LACTATE DEHYDROGENASE INCREASED [None]
  - CHILLS [None]
  - CONDITION AGGRAVATED [None]
  - DYSPNOEA [None]
  - INFUSION RELATED REACTION [None]
  - INTERNATIONAL NORMALISED RATIO INCREASED [None]
  - PYREXIA [None]
  - THROMBOCYTOPENIA [None]
  - WEIGHT INCREASED [None]
